FAERS Safety Report 17566299 (Version 1)
Quarter: 2020Q1

REPORT INFORMATION
  Report Type: Spontaneous
  Country: US (occurrence: US)
  Receive Date: 20200320
  Receipt Date: 20200320
  Transmission Date: 20200409
  Serious: No
  Sender: FDA-Public Use
  Company Number: None

PATIENT
  Age: 72 Year
  Sex: Male

DRUGS (1)
  1. ENOXAPARIN 150MG/ML PFS INJ [Suspect]
     Active Substance: ENOXAPARIN
     Dosage: OTHER
     Route: 058
     Dates: start: 20101201

REACTIONS (3)
  - Device difficult to use [None]
  - Product substitution issue [None]
  - Contusion [None]

NARRATIVE: CASE EVENT DATE: 20200320
